FAERS Safety Report 15689454 (Version 1)
Quarter: 2018Q4

REPORT INFORMATION
  Report Type: Spontaneous
  Country: FR (occurrence: FR)
  Receive Date: 20181205
  Receipt Date: 20181205
  Transmission Date: 20190205
  Serious: Yes (Other)
  Sender: FDA-Public Use
  Company Number: PHHY2018FR169564

PATIENT
  Sex: Female

DRUGS (2)
  1. VALPROIC ACID. [Suspect]
     Active Substance: VALPROIC ACID
     Indication: CONVULSION NEONATAL
     Dosage: 30 MG/KG, QD (DAY 5)
     Route: 048
  2. VALPROIC ACID. [Suspect]
     Active Substance: VALPROIC ACID
     Dosage: 20 MG/KG, QD
     Route: 048

REACTIONS (3)
  - Body temperature abnormal [Unknown]
  - Somnolence [Unknown]
  - Altered state of consciousness [Unknown]
